FAERS Safety Report 8461173-7 (Version None)
Quarter: 2012Q2

REPORT INFORMATION
  Report Type: 
  Country: None (occurrence: None)
  Receive Date: 20120625
  Receipt Date: 20120621
  Transmission Date: 20120825
  Serious: No
  Sender: FDA-Public Use
  Company Number: US-PFIZER INC-2012150039

PATIENT
  Sex: Female

DRUGS (2)
  1. NEURONTIN [Suspect]
     Indication: HERPES ZOSTER
     Dosage: UNK
  2. NEURONTIN [Suspect]
     Indication: PAIN

REACTIONS (2)
  - PRURITUS [None]
  - RASH [None]
